FAERS Safety Report 24777761 (Version 1)
Quarter: 2024Q4

REPORT INFORMATION
  Report Type: Spontaneous
  Country: CN (occurrence: CN)
  Receive Date: 20241226
  Receipt Date: 20241226
  Transmission Date: 20250115
  Serious: Yes (Other)
  Sender: BAYER HEALTHCARE PHARMACEUTICALS INC.
  Company Number: CN-BAYER-2024A182059

PATIENT
  Age: 61 Year
  Sex: Female
  Weight: 66 kg

DRUGS (2)
  1. ULTRAVIST [Suspect]
     Active Substance: IOPROMIDE
     Indication: Computerised tomogram abdomen
     Dosage: 85 ML, ONCE
     Route: 042
     Dates: start: 20241217, end: 20241217
  2. ULTRAVIST [Suspect]
     Active Substance: IOPROMIDE
     Indication: Computerised tomogram thorax

REACTIONS (6)
  - Asphyxia [Recovering/Resolving]
  - Throat tightness [Recovering/Resolving]
  - Rash pruritic [Recovering/Resolving]
  - Flushing [Recovering/Resolving]
  - Skin tightness [Recovering/Resolving]
  - Blood pressure systolic increased [None]

NARRATIVE: CASE EVENT DATE: 20241217
